FAERS Safety Report 17069552 (Version 1)
Quarter: 2019Q4

REPORT INFORMATION
  Report Type: Spontaneous
  Country: SE (occurrence: SE)
  Receive Date: 20191125
  Receipt Date: 20191125
  Transmission Date: 20200122
  Serious: Yes (Other)
  Sender: FDA-Public Use
  Company Number: SE-PFIZER INC-2019504663

PATIENT
  Age: 71 Year
  Sex: Male

DRUGS (1)
  1. CORDARONE [Suspect]
     Active Substance: AMIODARONE HYDROCHLORIDE
     Indication: ATRIAL FIBRILLATION
     Dosage: UNK
     Route: 065
     Dates: end: 20190711

REACTIONS (9)
  - Renal impairment [Unknown]
  - Pneumonia [Unknown]
  - Sensory loss [Unknown]
  - Fatigue [Unknown]
  - Eye pain [Unknown]
  - Dyspnoea [Unknown]
  - Spleen disorder [Unknown]
  - Apathy [Unknown]
  - Dry eye [Unknown]

NARRATIVE: CASE EVENT DATE: 20190430
